FAERS Safety Report 19766366 (Version 1)
Quarter: 2021Q3

REPORT INFORMATION
  Report Type: Spontaneous
  Country: US (occurrence: US)
  Receive Date: 20210830
  Receipt Date: 20210830
  Transmission Date: 20211014
  Serious: Yes (Hospitalization)
  Sender: FDA-Public Use
  Company Number: None

PATIENT
  Age: 59 Year
  Sex: Female
  Weight: 99.8 kg

DRUGS (3)
  1. IMDEVIMAB/CASIRIVIMAB 600MG EACH IVPB ONCE [Concomitant]
     Dates: start: 20210829, end: 20210829
  2. IMDEVIMAB/CASIRIVIMAB [Suspect]
     Active Substance: CASIRIVIMAB\IMDEVIMAB
     Indication: COVID-19
     Dosage: ?          OTHER FREQUENCY:ONCE;?
     Route: 040
     Dates: start: 20210829, end: 20210829
  3. EFFER?K 40MEQ PO ONCE [Concomitant]
     Dates: start: 20210829, end: 20210829

REACTIONS (2)
  - Nausea [None]
  - Vomiting [None]

NARRATIVE: CASE EVENT DATE: 20210830
